FAERS Safety Report 5995881-4 (Version None)
Quarter: 2008Q4

REPORT INFORMATION
  Report Type: 
  Country: None (occurrence: None)
  Receive Date: 20081212
  Receipt Date: 20081202
  Transmission Date: 20090506
  Serious: Yes (Disabling)
  Sender: FDA-Public Use
  Company Number: CY-PFIZER INC-2008151526

PATIENT

DRUGS (1)
  1. SUNITINIB MALATE [Suspect]
     Indication: ALVEOLAR SOFT PART SARCOMA METASTATIC
     Dosage: 37.5 MG, 1X/DAY
     Dates: start: 20081101

REACTIONS (3)
  - ACNE [None]
  - GAIT DISTURBANCE [None]
  - PALMAR-PLANTAR ERYTHRODYSAESTHESIA SYNDROME [None]
